FAERS Safety Report 5219560-6 (Version None)
Quarter: 2007Q1

REPORT INFORMATION
  Report Type: 
  Country: None (occurrence: None)
  Receive Date: 20061201
  Receipt Date: 20060705
  Transmission Date: 20070707
  Serious: No
  Sender: FDA-Public Use
  Company Number: 2006PV016987

PATIENT
  Sex: Male

DRUGS (3)
  1. BYETTA [Suspect]
     Dosage: 10 MCG; 5 MCG; BID;SC
     Route: 058
     Dates: start: 20050101, end: 20060601
  2. BYETTA [Suspect]
     Dosage: 10 MCG; 5 MCG; BID;SC
     Route: 058
     Dates: start: 20060601
  3. ATENOLOL [Concomitant]

REACTIONS (3)
  - HEART RATE DECREASED [None]
  - HEART RATE INCREASED [None]
  - HYPERTENSION [None]
